FAERS Safety Report 6319756-6 (Version None)
Quarter: 2009Q3

REPORT INFORMATION
  Report Type: 
  Country: None (occurrence: None)
  Receive Date: 20090822
  Receipt Date: 20080924
  Transmission Date: 20100115
  Serious: No
  Sender: FDA-Public Use
  Company Number: US-ABBOTT-08P-163-0477997-00

PATIENT
  Sex: Male
  Weight: 68.1 kg

DRUGS (5)
  1. NIASPAN [Suspect]
     Indication: CARDIAC DISORDER
     Route: 048
     Dates: start: 20040101
  2. SIMVASTATIN [Concomitant]
     Indication: CARDIAC DISORDER
     Route: 048
  3. IRBESARTAN [Concomitant]
     Indication: CARDIAC DISORDER
     Route: 048
  4. CARVEDILOL [Concomitant]
     Indication: CARDIAC DISORDER
     Route: 048
  5. ASPIRIN [Concomitant]
     Indication: DRUG USE FOR UNKNOWN INDICATION
     Dosage: 1 HALF TABLET, 1 HALF HR BEFORE NIASPAN
     Route: 048

REACTIONS (1)
  - FEELING HOT [None]
